FAERS Safety Report 5598831-8 (Version None)
Quarter: 2007Q4

REPORT INFORMATION
  Report Type: 
  Country: None (occurrence: None)
  Receive Date: 20071226
  Receipt Date: 20071113
  Transmission Date: 20080405
  Serious: No
  Sender: FDA-Public Use
  Company Number: 2007PV033714

PATIENT
  Age: 69 Year
  Sex: Female
  Weight: 103.4201 kg

DRUGS (4)
  1. SYMLIN [Suspect]
     Indication: TYPE 2 DIABETES MELLITUS
     Dosage: 60 MCG;TID;SC
     Route: 058
     Dates: start: 20071103
  2. NOVOLIN N [Concomitant]
  3. METFORMIN HCL [Concomitant]
  4. BYETTA [Concomitant]

REACTIONS (4)
  - FATIGUE [None]
  - FOOD CRAVING [None]
  - INCREASED APPETITE [None]
  - MALAISE [None]
